FAERS Safety Report 19092712 (Version 3)
Quarter: 2021Q2

REPORT INFORMATION
  Report Type: Spontaneous
  Country: NL (occurrence: NL)
  Receive Date: 20210405
  Receipt Date: 20210426
  Transmission Date: 20210717
  Serious: Yes (Other)
  Sender: FDA-Public Use
  Company Number: NL-PFIZER INC-2021316868

PATIENT
  Age: 51 Year
  Sex: Female
  Weight: 101 kg

DRUGS (10)
  1. THYRAX DUO [Concomitant]
     Active Substance: LEVOTHYROXINE SODIUM
     Dosage: 0.125 PER DAY
  2. SULFASALAZINE. [Suspect]
     Active Substance: SULFASALAZINE
     Indication: RHEUMATOID ARTHRITIS
     Dosage: 3 DF
  3. SULFASALAZINE. [Suspect]
     Active Substance: SULFASALAZINE
     Dosage: 500 MG, 1X/DAY
     Dates: start: 20201110, end: 20201110
  4. THYRAX [LEVOTHYROXINE] [Concomitant]
     Indication: AUTOIMMUNE THYROID DISORDER
     Dosage: 0.125 MG, 1X/DAY
  5. SULFASALAZINE. [Suspect]
     Active Substance: SULFASALAZINE
     Dosage: 1 DF, 2X/DAY (EVERY 12 HOURS)
     Dates: end: 20210225
  6. VOLTAREN [DICLOFENAC] [Concomitant]
     Active Substance: DICLOFENAC SODIUM
     Indication: RHEUMATOID ARTHRITIS
     Dosage: UNK
  7. VOLTAREN [DICLOFENAC] [Concomitant]
     Active Substance: DICLOFENAC SODIUM
     Indication: INFLAMMATION
  8. SULFASALAZINE. [Suspect]
     Active Substance: SULFASALAZINE
     Dosage: 3 DF, 2X/DAY (2 AND 1 TABLET 2X PER DAY)
     Dates: start: 20191117
  9. VAXIGRIPTETRA [Suspect]
     Active Substance: INFLUENZA VIRUS VACCINE QUADRIVALENT TYPE A+B
     Indication: IMMUNISATION
     Dosage: 1 DF, SINGLE
     Dates: start: 20201110, end: 20201110
  10. PARACETAMOL [Concomitant]
     Active Substance: ACETAMINOPHEN
     Indication: PAIN
     Dosage: UNK

REACTIONS (17)
  - Administration site pain [Unknown]
  - Burning sensation [Recovered/Resolved]
  - Neuralgia [Recovered/Resolved]
  - Sputum retention [Unknown]
  - Neuropathy peripheral [Recovering/Resolving]
  - Drug ineffective [Unknown]
  - Autoimmune disorder [Unknown]
  - Throat clearing [Unknown]
  - Oropharyngeal pain [Recovered/Resolved]
  - Pain in extremity [Unknown]
  - Lacrimation increased [Unknown]
  - Myalgia [Recovered/Resolved]
  - Blood test abnormal [Unknown]
  - Hypersensitivity [Unknown]
  - Dermatitis [Recovered/Resolved]
  - Feeling hot [Recovered/Resolved]
  - Rheumatic disorder [Unknown]

NARRATIVE: CASE EVENT DATE: 2019
